FAERS Safety Report 9641709 (Version 2)
Quarter: 2013Q4

REPORT INFORMATION
  Report Type: Spontaneous
  Country: JP (occurrence: JP)
  Receive Date: 20131023
  Receipt Date: 20131023
  Transmission Date: 20140711
  Serious: Yes (Death)
  Sender: FDA-Public Use
  Company Number: JP-JHP PHARMACEUTICALS, LLC-JHP201300609

PATIENT
  Age: 2 Year
  Sex: Male

DRUGS (2)
  1. DANTRIUM [Suspect]
     Indication: NEUROLEPTIC MALIGNANT SYNDROME
     Dosage: 30 MG, DAILY
     Route: 048
     Dates: start: 20130817
  2. DOPASOL [Suspect]
     Route: 048

REACTIONS (3)
  - Off label use [Recovered/Resolved]
  - Chromaturia [Recovered/Resolved]
  - Oculocerebrorenal syndrome [Fatal]
